FAERS Safety Report 16785620 (Version 6)
Quarter: 2021Q2

REPORT INFORMATION
  Report Type: Spontaneous
  Country: US (occurrence: US)
  Receive Date: 20190909
  Receipt Date: 20210622
  Transmission Date: 20210716
  Serious: No
  Sender: FDA-Public Use
  Company Number: US-PFIZER INC-2019193611

PATIENT
  Age: 62 Year
  Sex: Female
  Weight: 70.75 kg

DRUGS (5)
  1. LYRICA [Suspect]
     Active Substance: PREGABALIN
     Dosage: 1 DF, UNK (1 CAPSULE 5 TIMES A DAY)
  2. LYRICA [Suspect]
     Active Substance: PREGABALIN
     Dosage: 150 MG, THREE TIMES A DAY (2 CAPSULES ORALLY (P.O) TID)
     Route: 048
  3. LYRICA [Suspect]
     Active Substance: PREGABALIN
     Dosage: 75 MG, UNK (75 MG 5 X D)
     Dates: start: 2009
  4. LYRICA [Suspect]
     Active Substance: PREGABALIN
     Indication: FIBROMYALGIA
     Dosage: 225 MG, TWICE DAILY
  5. LYRICA [Suspect]
     Active Substance: PREGABALIN
     Dosage: 375 MG, DAILY (SIG:5/DAY)

REACTIONS (8)
  - Hypersensitivity [Unknown]
  - Sleep disorder [Unknown]
  - Nightmare [Unknown]
  - Thinking abnormal [Unknown]
  - Stress [Recovered/Resolved]
  - Pain [Unknown]
  - Memory impairment [Unknown]
  - Hypoacusis [Unknown]
